FAERS Safety Report 4522883-7 (Version None)
Quarter: 2005Q1

REPORT INFORMATION
  Report Type: 
  Country: None (occurrence: None)
  Receive Date: 20041101
  Receipt Date: 20040730
  Transmission Date: 20050727
  Serious: Yes (Other)
  Sender: FDA-Public Use
  Company Number: HQWYE731003AUG04

PATIENT
  Age: 56 Year
  Sex: Female

DRUGS (3)
  1. PREMARIN [Suspect]
  2. ESTRACE [Suspect]
  3. PROVERA [Suspect]

REACTIONS (1)
  - BREAST CANCER [None]
